FAERS Safety Report 20935921 (Version 1)
Quarter: 2022Q2

REPORT INFORMATION
  Report Type: Spontaneous
  Country: US (occurrence: None)
  Receive Date: 20220609
  Receipt Date: 20220609
  Transmission Date: 20220721
  Serious: No
  Sender: FDA-Public Use
  Company Number: US-ROCHE-2832867

PATIENT
  Sex: Female

DRUGS (11)
  1. ACTEMRA [Suspect]
     Active Substance: TOCILIZUMAB
     Indication: Giant cell arteritis
     Route: 058
  2. ACTEMRA [Suspect]
     Active Substance: TOCILIZUMAB
  3. ALENDRONATE [Concomitant]
     Active Substance: ALENDRONATE SODIUM
  4. AMITRIPTYLINE [Concomitant]
     Active Substance: AMITRIPTYLINE
  5. ASPIRIN [Concomitant]
     Active Substance: ASPIRIN
  6. ATORVASTATIN [Concomitant]
     Active Substance: ATORVASTATIN
  7. CLOPIDOGREL [Concomitant]
     Active Substance: CLOPIDOGREL BISULFATE
  8. LOSARTAN POTASSIUM [Concomitant]
     Active Substance: LOSARTAN POTASSIUM
  9. MELATONIN [Concomitant]
     Active Substance: MELATONIN
  10. PREDNISOLONE [Concomitant]
     Active Substance: PREDNISOLONE
  11. RIZATRIPTAN [Concomitant]
     Active Substance: RIZATRIPTAN

REACTIONS (2)
  - Drug ineffective [Unknown]
  - No adverse event [Unknown]
